FAERS Safety Report 6944380-1 (Version None)
Quarter: 2010Q3

REPORT INFORMATION
  Report Type: 
  Country: None (occurrence: None)
  Receive Date: 20100827
  Receipt Date: 20100819
  Transmission Date: 20110219
  Serious: No
  Sender: FDA-Public Use
  Company Number: US-US-EMD SERONO, INC.-7010888

PATIENT
  Sex: Female

DRUGS (7)
  1. REBIF [Suspect]
     Indication: MULTIPLE SCLEROSIS
     Route: 058
     Dates: start: 20100614, end: 20100712
  2. UNSPECIFIED MEDICATIONS [Concomitant]
  3. CLONAZEPAM [Concomitant]
  4. SIMVASTATIN [Concomitant]
  5. TRAZODONE HCL [Concomitant]
  6. EFFEXOR XR [Concomitant]
  7. GABAPENTIN [Concomitant]

REACTIONS (9)
  - ARTHRALGIA [None]
  - EPISTAXIS [None]
  - FEELING ABNORMAL [None]
  - HAEMATEMESIS [None]
  - HALLUCINATION [None]
  - HEADACHE [None]
  - PRURITUS [None]
  - TYPE IV HYPERSENSITIVITY REACTION [None]
  - URTICARIA [None]
